FAERS Safety Report 5792107-1 (Version None)
Quarter: 2008Q2

REPORT INFORMATION
  Report Type: 
  Country: None (occurrence: None)
  Receive Date: 20080626
  Receipt Date: 20080331
  Transmission Date: 20081010
  Serious: No
  Sender: FDA-Public Use
  Company Number: US-ASTRAZENECA-2008UW06389

PATIENT
  Age: 50 Year
  Sex: Male
  Weight: 67.1 kg

DRUGS (1)
  1. PULMICORT FLEXHALER [Suspect]
     Indication: WHEEZING
     Dosage: 180UG 2 PUFFS BID
     Route: 055

REACTIONS (1)
  - PRODUCTIVE COUGH [None]
